FAERS Safety Report 11894920 (Version 1)
Quarter: 2016Q1

REPORT INFORMATION
  Report Type: Spontaneous
  Country: GB (occurrence: GB)
  Receive Date: 20160107
  Receipt Date: 20160107
  Transmission Date: 20160526
  Serious: Yes (Hospitalization, Other)
  Sender: FDA-Public Use
  Company Number: GB-BAYER-2016-000862

PATIENT
  Age: 64 Year
  Sex: Male

DRUGS (1)
  1. ESTRADIOL. [Suspect]
     Active Substance: ESTRADIOL
     Dosage: 100 ?G/24 HOURS, CHANGED TWICE A WEEK
     Route: 062

REACTIONS (2)
  - Erythema nodosum [None]
  - Conjunctival haemorrhage [None]
